FAERS Safety Report 6620849-4 (Version None)
Quarter: 2010Q1

REPORT INFORMATION
  Report Type: 
  Country: None (occurrence: None)
  Receive Date: 20100309
  Receipt Date: 20090519
  Transmission Date: 20100710
  Serious: No
  Sender: FDA-Public Use
  Company Number: US-BIOGENIDEC-2009BI015226

PATIENT
  Age: 44 Year
  Sex: Female

DRUGS (6)
  1. AVONEX [Suspect]
     Indication: MULTIPLE SCLEROSIS
     Route: 030
     Dates: start: 20081101, end: 20081101
  2. AVONEX [Suspect]
     Route: 030
     Dates: start: 20081101, end: 20081201
  3. AVONEX [Suspect]
     Route: 030
     Dates: start: 20081201, end: 20090101
  4. AVONEX [Suspect]
     Route: 030
     Dates: start: 20090101
  5. TYLENOL-500 [Concomitant]
     Indication: PREMEDICATION
     Route: 048
  6. ADVIL LIQUI-GELS [Concomitant]
     Indication: PREMEDICATION
     Route: 048

REACTIONS (6)
  - APHTHOUS STOMATITIS [None]
  - CANDIDIASIS [None]
  - FATIGUE [None]
  - INFLUENZA LIKE ILLNESS [None]
  - PAIN [None]
  - PAIN OF SKIN [None]
